FAERS Safety Report 5006634-8 (Version None)
Quarter: 2006Q2

REPORT INFORMATION
  Report Type: 
  Country: None (occurrence: None)
  Receive Date: 20060519
  Receipt Date: 20060509
  Transmission Date: 20061013
  Serious: Yes (Hospitalization)
  Sender: FDA-Public Use
  Company Number: PHRM2006FR01521

PATIENT
  Age: 58 Year
  Sex: Male

DRUGS (5)
  1. EUPRESSYL [Concomitant]
     Indication: ANEURYSM
     Dosage: 1 DF, TID
     Route: 048
  2. ESIDRIX [Suspect]
     Indication: ANEURYSM
     Dosage: 25 MG, QD
     Route: 048
     Dates: end: 20060131
  3. TENORMIN [Concomitant]
     Indication: ANEURYSM
     Route: 048
  4. AMLOR [Concomitant]
     Indication: ANEURYSM
     Dosage: 1 DF, BID
     Route: 048
  5. LOPRIL [Suspect]
     Indication: ANEURYSM
     Dosage: 1 DF, QD
     Route: 048
     Dates: end: 20060131

REACTIONS (6)
  - AGRANULOCYTOSIS [None]
  - ANAEMIA [None]
  - GOUTY ARTHRITIS [None]
  - HAEMOGLOBIN DECREASED [None]
  - NEUTROPHIL COUNT DECREASED [None]
  - PNEUMONIA [None]
